FAERS Safety Report 4340750-9 (Version None)
Quarter: 2004Q2

REPORT INFORMATION
  Report Type: 
  Country: None (occurrence: None)
  Receive Date: 20040413
  Receipt Date: 20040402
  Transmission Date: 20050107
  Serious: Yes (Hospitalization)
  Sender: FDA-Public Use
  Company Number: 2000031190US

PATIENT
  Age: 52 Year
  Sex: Female

DRUGS (3)
  1. ROGAINE [Suspect]
     Indication: ALOPECIA
     Dosage: 1 ML, BID, TOPICAL
     Route: 061
     Dates: start: 20000922, end: 20000929
  2. ESTRODERM PATCH [Concomitant]
  3. MEDROXYPROGESTERONE [Concomitant]

REACTIONS (7)
  - CARDIAC ARREST [None]
  - DEHYDRATION [None]
  - DYSPNOEA [None]
  - HYPOTENSION [None]
  - PAIN [None]
  - TACHYCARDIA [None]
  - THIRST [None]
